FAERS Safety Report 16187323 (Version 5)
Quarter: 2019Q3

REPORT INFORMATION
  Report Type: Report from Study
  Country: US (occurrence: US)
  Receive Date: 20190412
  Receipt Date: 20190710
  Transmission Date: 20191004
  Serious: Yes (Death, Life-Threatening, Hospitalization, Other)
  Sender: FDA-Public Use
  Company Number: US-BRISTOL-MYERS SQUIBB COMPANY-BMS-2019-035729

PATIENT
  Age: 64 Year
  Sex: Male

DRUGS (2)
  1. IPILIMUMAB [Suspect]
     Active Substance: IPILIMUMAB
     Indication: NEUROENDOCRINE CARCINOMA OF THE SKIN
     Dosage: UNK
     Route: 065
     Dates: start: 20190125
  2. NIVOLUMAB [Suspect]
     Active Substance: NIVOLUMAB
     Indication: NEUROENDOCRINE CARCINOMA OF THE SKIN
     Dosage: UNK
     Route: 065
     Dates: start: 20190125

REACTIONS (11)
  - Hypotension [Unknown]
  - Malignant neoplasm progression [Unknown]
  - Ascites [Unknown]
  - Gastrointestinal haemorrhage [Unknown]
  - Acute kidney injury [Unknown]
  - Tumour pain [Unknown]
  - Cardiac arrest [Fatal]
  - Neoplasm swelling [Unknown]
  - Adrenal insufficiency [Unknown]
  - Colitis [Unknown]
  - Constipation [Unknown]

NARRATIVE: CASE EVENT DATE: 20190401
